FAERS Safety Report 6279424-6 (Version None)
Quarter: 2009Q3

REPORT INFORMATION
  Report Type: 
  Country: None (occurrence: None)
  Receive Date: 20090721
  Receipt Date: 20090714
  Transmission Date: 20100115
  Serious: Yes (Life-Threatening, Hospitalization, Other)
  Sender: FDA-Public Use
  Company Number: 230002K09TUR

PATIENT
  Age: 32 Year
  Sex: Female
  Weight: 56 kg

DRUGS (1)
  1. REBIF [Suspect]
     Dates: start: 20080101

REACTIONS (2)
  - ABDOMINAL INJURY [None]
  - SUICIDE ATTEMPT [None]
